FAERS Safety Report 14944374 (Version 1)
Quarter: 2018Q2

REPORT INFORMATION
  Report Type: Spontaneous
  Country: AR (occurrence: AR)
  Receive Date: 20180528
  Receipt Date: 20180528
  Transmission Date: 20180711
  Serious: Yes (Other)
  Sender: FDA-Public Use
  Company Number: AR-UCBSA-2018022769

PATIENT
  Age: 40 Year
  Sex: Female

DRUGS (3)
  1. ESTRADIOL. [Concomitant]
     Active Substance: ESTRADIOL
     Indication: ORAL CONTRACEPTION
  2. NOMEGESTROL [Concomitant]
     Active Substance: NOMEGESTROL
     Indication: ORAL CONTRACEPTION
  3. CIMZIA [Suspect]
     Active Substance: CERTOLIZUMAB PEGOL
     Indication: PSORIATIC ARTHROPATHY
     Dosage: 400 MG, UNK
     Route: 058
     Dates: start: 20180110, end: 20180110

REACTIONS (1)
  - Polymenorrhoea [Recovering/Resolving]

NARRATIVE: CASE EVENT DATE: 201801
